FAERS Safety Report 7285583-9 (Version None)
Quarter: 2011Q1

REPORT INFORMATION
  Report Type: 
  Country: None (occurrence: None)
  Receive Date: 20110210
  Receipt Date: 20110207
  Transmission Date: 20110831
  Serious: Yes (Hospitalization)
  Sender: FDA-Public Use
  Company Number: A0779038A

PATIENT
  Age: 35 Year
  Sex: Female
  Weight: 113.6 kg

DRUGS (9)
  1. SIMVASTATIN [Concomitant]
  2. LEVOTHYROXINE SODIUM [Concomitant]
  3. IBUPROFEN [Concomitant]
  4. FLUCONAZOLE [Concomitant]
  5. BENAZEPRIL [Concomitant]
  6. LISINOPRIL [Concomitant]
  7. PROMETHAZINE [Concomitant]
  8. AVANDIA [Suspect]
     Indication: DIABETES MELLITUS
     Dosage: 4MG PER DAY
     Route: 048
     Dates: start: 20031215, end: 20070101
  9. TRAMADOL HCL [Concomitant]

REACTIONS (1)
  - MYOCARDIAL INFARCTION [None]
